FAERS Safety Report 9110580 (Version 1)
Quarter: 2013Q1

REPORT INFORMATION
  Report Type: Spontaneous
  Country: US (occurrence: US)
  Receive Date: 20130219
  Receipt Date: 20130219
  Transmission Date: 20140127
  Serious: No
  Sender: FDA-Public Use
  Company Number: US-BRISTOL-MYERS SQUIBB COMPANY-16966954

PATIENT
  Age: 64 Year
  Sex: Male
  Weight: 84.8 kg

DRUGS (6)
  1. ORENCIA [Suspect]
     Indication: RHEUMATOID ARTHRITIS
     Dosage: STRENGTH IS 125MG?INJECT 1ML SUBC
     Route: 058
     Dates: start: 20120801
  2. ADVIL [Concomitant]
  3. ASPIRIN [Concomitant]
  4. MEDROL [Concomitant]
  5. PREVACID [Concomitant]
  6. PROPAFENONE [Concomitant]

REACTIONS (1)
  - Rash [Not Recovered/Not Resolved]
